FAERS Safety Report 6898353-8 (Version None)
Quarter: 2010Q3

REPORT INFORMATION
  Report Type: 
  Country: None (occurrence: None)
  Receive Date: 20100802
  Receipt Date: 20071002
  Transmission Date: 20110219
  Serious: No
  Sender: FDA-Public Use
  Company Number: US-PFIZER INC-2007082311

PATIENT
  Sex: Female
  Weight: 52.727 kg

DRUGS (4)
  1. LYRICA [Suspect]
     Indication: POST HERPETIC NEURALGIA
     Dates: start: 20070920
  2. LYRICA [Suspect]
     Indication: NEUROPATHY PERIPHERAL
  3. SYNTHROID [Concomitant]
  4. MOMETASONE FUROATE [Concomitant]

REACTIONS (3)
  - DRUG INEFFECTIVE [None]
  - HYPOAESTHESIA [None]
  - PAIN [None]
